FAERS Safety Report 10721489 (Version 4)
Quarter: 2015Q3

REPORT INFORMATION
  Report Type: Spontaneous
  Country: US (occurrence: US)
  Receive Date: 20150119
  Receipt Date: 20150810
  Transmission Date: 20151125
  Serious: Yes (Hospitalization, Other)
  Sender: FDA-Public Use
  Company Number: US-BAYER-2015-004190

PATIENT
  Age: 23 Year
  Sex: Female
  Weight: 93.42 kg

DRUGS (5)
  1. HYDROCODONE W/ACETAMINOPHEN [Concomitant]
     Active Substance: ACETAMINOPHEN\HYDROCODONE BITARTRATE
     Dosage: UNK
     Dates: start: 20121010
  2. MIRENA [Suspect]
     Active Substance: LEVONORGESTREL
     Indication: CONTRACEPTION
     Dosage: 20 MCG/24HR, CONT
     Route: 015
     Dates: start: 20101116, end: 20130117
  3. METRONIDAZOLE. [Concomitant]
     Active Substance: METRONIDAZOLE
     Dosage: 250 MG, UNK
     Dates: start: 20121010
  4. NAPROXEN. [Concomitant]
     Active Substance: NAPROXEN
     Dosage: 500 MG, UNK
     Dates: start: 20121106
  5. CEPHALEXIN. [Concomitant]
     Active Substance: CEPHALEXIN
     Dosage: 500 MG, UNK
     Dates: start: 20121106

REACTIONS (11)
  - Abdominal pain [None]
  - Device dislocation [None]
  - Emotional distress [None]
  - Vaginal discharge [None]
  - Device dislocation [None]
  - Device difficult to use [None]
  - Injury [None]
  - Off label use of device [None]
  - Embedded device [None]
  - Pelvic pain [None]
  - Procedural pain [None]

NARRATIVE: CASE EVENT DATE: 201212
